FAERS Safety Report 7247167-8 (Version None)
Quarter: 2011Q1

REPORT INFORMATION
  Report Type: 
  Country: None (occurrence: None)
  Receive Date: 20110127
  Receipt Date: 20110119
  Transmission Date: 20110831
  Serious: Yes (Death, Other)
  Sender: FDA-Public Use
  Company Number: DE-GENZYME-CAMP-1001299

PATIENT
  Age: 68 Year
  Sex: Male

DRUGS (11)
  1. ANTI-THYMOCYTE GLOBULIN NOS [Concomitant]
     Indication: PROPHYLAXIS AGAINST GRAFT VERSUS HOST DISEASE
     Route: 065
  2. ACYCLOVIR [Concomitant]
     Indication: INFECTION PROPHYLAXIS
     Route: 065
  3. MYCOPHENOLATE MOFETIL [Concomitant]
     Indication: PROPHYLAXIS AGAINST GRAFT VERSUS HOST DISEASE
     Dosage: 15 MG/KG, BID
     Route: 065
  4. CARMUSTINE [Suspect]
     Indication: BONE MARROW CONDITIONING REGIMEN
     Dosage: UNK
     Route: 065
  5. CYCLOSPORINE [Concomitant]
     Indication: PROPHYLAXIS AGAINST GRAFT VERSUS HOST DISEASE
     Route: 065
  6. CAMPATH [Suspect]
     Dosage: 5-10 MG Q2-3 WEEKS
     Route: 042
  7. MELPHALAN [Suspect]
     Indication: BONE MARROW CONDITIONING REGIMEN
     Dosage: UNK
     Route: 065
  8. TRIMETHOPRIM + SULFAMETHOXAZOLE [Concomitant]
     Indication: INFECTION PROPHYLAXIS
     Route: 065
  9. CAMPATH [Suspect]
     Indication: ACUTE GRAFT VERSUS HOST DISEASE
     Dosage: 3-13 MG ON 1 OR 3 DAYS
     Route: 042
  10. FLUDARABINE [Suspect]
     Indication: BONE MARROW CONDITIONING REGIMEN
     Dosage: UNK
     Route: 065
  11. FLUCONAZOLE [Concomitant]
     Indication: INFECTION PROPHYLAXIS
     Route: 065

REACTIONS (5)
  - DEATH [None]
  - CYTOMEGALOVIRUS INFECTION [None]
  - ACUTE GRAFT VERSUS HOST DISEASE [None]
  - CEREBRAL TOXOPLASMOSIS [None]
  - BRONCHOPULMONARY ASPERGILLOSIS [None]
